FAERS Safety Report 25241526 (Version 1)
Quarter: 2025Q2

REPORT INFORMATION
  Report Type: Spontaneous
  Country: FR (occurrence: FR)
  Receive Date: 20250426
  Receipt Date: 20250426
  Transmission Date: 20250717
  Serious: Yes (Other)
  Sender: NOVITIUM PHARMA
  Company Number: FR-NOVITIUMPHARMA-2025FRNVP00966

PATIENT
  Age: 33 Year
  Sex: Female

DRUGS (4)
  1. PREDNISONE [Suspect]
     Active Substance: PREDNISONE
     Indication: Uveitis
  2. METHOTREXATE [Concomitant]
     Active Substance: METHOTREXATE
     Indication: Uveitis
  3. MYCOPHENOLATE MOFETIL [Concomitant]
     Active Substance: MYCOPHENOLATE MOFETIL
     Indication: Uveitis
  4. TOCILIZUMAB [Concomitant]
     Active Substance: TOCILIZUMAB
     Indication: Product used for unknown indication

REACTIONS (1)
  - Drug dependence [Unknown]
